FAERS Safety Report 5991236-7 (Version None)
Quarter: 2008Q4

REPORT INFORMATION
  Report Type: 
  Country: None (occurrence: None)
  Receive Date: 20081211
  Receipt Date: 20081205
  Transmission Date: 20090506
  Serious: Yes (Hospitalization)
  Sender: FDA-Public Use
  Company Number: US-JNJFOC-20071106222

PATIENT
  Sex: Female
  Weight: 78.02 kg

DRUGS (5)
  1. ORTHO EVRA [Suspect]
     Route: 062
  2. ORTHO EVRA [Suspect]
     Indication: MENSTRUATION IRREGULAR
     Route: 062
  3. ORTHO EVRA [Suspect]
     Indication: CONTRACEPTION
     Route: 062
  4. LOGESTREL [Suspect]
     Indication: DRUG THERAPY
     Route: 048
  5. LOGESTREL [Suspect]
     Indication: CONTRACEPTION
     Route: 048

REACTIONS (1)
  - VAGINAL HAEMORRHAGE [None]
